FAERS Safety Report 7211810-X (Version None)
Quarter: 2011Q1

REPORT INFORMATION
  Report Type: 
  Country: None (occurrence: None)
  Receive Date: 20110105
  Receipt Date: 20101231
  Transmission Date: 20110831
  Serious: Yes (Death)
  Sender: FDA-Public Use
  Company Number: BR-GILEAD-2011-0034830

PATIENT
  Sex: Male
  Weight: 68 kg

DRUGS (10)
  1. RALTEGRAVIR [Suspect]
     Indication: HIV INFECTION
     Dates: start: 20101214, end: 20101224
  2. PYRIDOXINE HCL [Concomitant]
     Indication: NEUROPATHY PERIPHERAL
     Dates: start: 20100411, end: 20101224
  3. TENOFOVIR DISOPROXIL FUMARATE [Suspect]
     Indication: HIV INFECTION
     Dates: start: 20101214, end: 20101224
  4. ETHAMBUTOL HYDROCHLORIDE [Concomitant]
     Indication: PULMONARY TUBERCULOSIS
     Dates: start: 20101030, end: 20101224
  5. RIFAMPICIN [Concomitant]
     Indication: PULMONARY TUBERCULOSIS
     Dates: start: 20101030, end: 20101224
  6. PYRAZINAMIDE [Concomitant]
     Indication: PULMONARY TUBERCULOSIS
     Dates: start: 20101030, end: 20101224
  7. LAMIVUDINE [Suspect]
     Indication: HIV INFECTION
     Dates: start: 20101214, end: 20101224
  8. ASCORBIC ACID [Concomitant]
     Indication: SUPPLEMENTATION THERAPY
     Dates: start: 20100411, end: 20101224
  9. ISONIAZID [Concomitant]
     Indication: PULMONARY TUBERCULOSIS
     Dates: start: 20101030, end: 20101224
  10. BACTRIM [Concomitant]
     Indication: ANTIFUNGAL PROPHYLAXIS
     Dates: start: 20101025, end: 20101224

REACTIONS (1)
  - DEATH [None]
